FAERS Safety Report 18706271 (Version 1)
Quarter: 2021Q1

REPORT INFORMATION
  Report Type: Spontaneous
  Country: US (occurrence: US)
  Receive Date: 20210105
  Receipt Date: 20210105
  Transmission Date: 20210419
  Serious: Yes (Hospitalization)
  Sender: FDA-Public Use
  Company Number: None

PATIENT
  Age: 54 Year
  Sex: Female
  Weight: 60.3 kg

DRUGS (8)
  1. ATIVAN [Suspect]
     Active Substance: LORAZEPAM
     Indication: PANIC REACTION
     Route: 048
  2. PROZAC [Suspect]
     Active Substance: FLUOXETINE HYDROCHLORIDE
  3. CLONAZEPAM. [Suspect]
     Active Substance: CLONAZEPAM
  4. PHENOBARBITAL. [Suspect]
     Active Substance: PHENOBARBITAL
  5. SUBOXONE [Suspect]
     Active Substance: BUPRENORPHINE HYDROCHLORIDE\NALOXONE HYDROCHLORIDE
  6. CELEXA [Suspect]
     Active Substance: CITALOPRAM HYDROBROMIDE
  7. FLEXERIL [Suspect]
     Active Substance: CYCLOBENZAPRINE HYDROCHLORIDE
  8. ECT [Suspect]
     Active Substance: UNSPECIFIED INGREDIENT

REACTIONS (22)
  - Hyperhidrosis [None]
  - Photophobia [None]
  - Drug dependence [None]
  - Insomnia [None]
  - Confusional state [None]
  - Panic attack [None]
  - Somnolence [None]
  - Anxiety [None]
  - Hyperacusis [None]
  - Nightmare [None]
  - Bruxism [None]
  - Movement disorder [None]
  - Quality of life decreased [None]
  - Pain [None]
  - Tremor [None]
  - Decreased interest [None]
  - Dysgeusia [None]
  - Refusal of treatment by patient [None]
  - Drug screen positive [None]
  - Dissociation [None]
  - Memory impairment [None]
  - Drug withdrawal syndrome [None]

NARRATIVE: CASE EVENT DATE: 20180113
